FAERS Safety Report 8142321-5 (Version None)
Quarter: 2012Q1

REPORT INFORMATION
  Report Type: 
  Country: None (occurrence: None)
  Receive Date: 20120216
  Receipt Date: 20120207
  Transmission Date: 20120608
  Serious: Yes (Hospitalization)
  Sender: FDA-Public Use
  Company Number: SA-NOVOPROD-344595

PATIENT
  Sex: Female

DRUGS (2)
  1. NOVOSEVEN [Suspect]
     Indication: FACTOR VII DEFICIENCY
     Dosage: 50-60 MCG/KG
     Route: 065
  2. NOVOSEVEN [Suspect]
     Indication: PAIN

REACTIONS (2)
  - SCIATICA [None]
  - ANTI FACTOR VII ANTIBODY POSITIVE [None]
